FAERS Safety Report 25977957 (Version 1)
Quarter: 2025Q4

REPORT INFORMATION
  Report Type: Spontaneous
  Country: EU (occurrence: EU)
  Receive Date: 20251030
  Receipt Date: 20251030
  Transmission Date: 20260118
  Serious: Yes (Life-Threatening, Hospitalization)
  Sender: TEVA
  Company Number: None

PATIENT
  Age: 14 Year
  Sex: Female

DRUGS (6)
  1. IBUPROFEN [Suspect]
     Active Substance: IBUPROFEN
     Indication: Intentional self-injury
     Dosage: UNKNOWN NUMBER OF TABLETS TAKEN
     Route: 065
     Dates: start: 20250930
  2. CYCLIZINE HYDROCHLORIDE [Suspect]
     Active Substance: CYCLIZINE HYDROCHLORIDE
     Indication: Intentional overdose
     Dosage: TIME INTERVAL: TOTAL: 6 TABLETS TAKEN IN SUICIDAL IDEATION
     Route: 065
     Dates: start: 20250930
  3. SERTRALINE HYDROCHLORIDE [Suspect]
     Active Substance: SERTRALINE HYDROCHLORIDE
     Indication: Intentional self-injury
     Dosage: TIME INTERVAL: TOTAL: 6 TABLETS TAKEN IN SUICIDAL IDEATION. NOT PART OF THE PATIENT^S PRESCRIBED ...
     Route: 048
     Dates: start: 20250930
  4. METOCLOPRAMIDE [Suspect]
     Active Substance: METOCLOPRAMIDE
     Indication: Intentional overdose
     Dosage: TIME INTERVAL: TOTAL: 19 TABLETS TAKEN IN SUICIDAL IDEATION
     Route: 048
     Dates: start: 20250930
  5. FLUOXETINE HYDROCHLORIDE [Suspect]
     Active Substance: FLUOXETINE HYDROCHLORIDE
     Indication: Depression
     Dosage: 70 - 80 TABLETS TAKEN IN SUCIDAL IDEATION. THE PATIENT HAD A PRESCRIPTION FOR FLUOXETINE IN A REG...
     Route: 048
     Dates: start: 20250930
  6. ACETAMINOPHEN [Suspect]
     Active Substance: ACETAMINOPHEN
     Indication: Intentional self-injury
     Dosage: UNKNOWN NUMBER OF TABLETS TAKEN
     Route: 048
     Dates: start: 20250930

REACTIONS (5)
  - Serotonin syndrome [Recovered/Resolved]
  - Poisoning deliberate [Recovered/Resolved]
  - Suicide attempt [Recovered/Resolved]
  - Intentional overdose [Recovered/Resolved]
  - Toxicity to various agents [Recovered/Resolved]

NARRATIVE: CASE EVENT DATE: 20250930
